FAERS Safety Report 17433539 (Version 3)
Quarter: 2020Q1

REPORT INFORMATION
  Report Type: Report from Study
  Country: US (occurrence: US)
  Receive Date: 20200219
  Receipt Date: 20200316
  Transmission Date: 20200409
  Serious: Yes (Other)
  Sender: FDA-Public Use
  Company Number: NVSC2020US039778

PATIENT
  Age: 67 Year
  Sex: Female

DRUGS (5)
  1. ENTRESTO [Suspect]
     Active Substance: SACUBITRIL\VALSARTAN
     Dosage: 50 MG, (24MG SACUBITRIL 26MG VALSARTAN) QD
     Route: 065
  2. ENTRESTO [Suspect]
     Active Substance: SACUBITRIL\VALSARTAN
     Indication: CARDIAC FAILURE
     Dosage: 50 MG(24MG SACUBITRIL 26MG VALSARTAN), BID
     Route: 048
  3. ENTRESTO [Suspect]
     Active Substance: SACUBITRIL\VALSARTAN
     Dosage: 50 MG, (24MG SACUBITRIL 26MG VALSARTAN) BID
     Route: 048
     Dates: start: 20191228
  4. ENTRESTO [Suspect]
     Active Substance: SACUBITRIL\VALSARTAN
     Dosage: 0.5 DF
     Route: 048
     Dates: start: 20200118
  5. NAPROXEN. [Suspect]
     Active Substance: NAPROXEN
     Indication: FIBROMYALGIA
     Dosage: UNK
     Route: 065

REACTIONS (9)
  - Stress [Unknown]
  - Wrong technique in product usage process [Unknown]
  - Weight increased [Unknown]
  - Underdose [Unknown]
  - Decreased appetite [Unknown]
  - Peripheral swelling [Unknown]
  - Cardiac disorder [Unknown]
  - Atrial fibrillation [Unknown]
  - Anxiety [Unknown]

NARRATIVE: CASE EVENT DATE: 20200118
